FAERS Safety Report 24068321 (Version 1)
Quarter: 2024Q3

REPORT INFORMATION
  Report Type: Report from Study
  Country: CA (occurrence: CA)
  Receive Date: 20240710
  Receipt Date: 20240710
  Transmission Date: 20241016
  Serious: No
  Sender: ROCHE
  Company Number: CA-ROCHE-3524786

PATIENT
  Age: 62 Year
  Sex: Male

DRUGS (1)
  1. VABYSMO [Suspect]
     Active Substance: FARICIMAB\FARICIMAB-SVOA
     Indication: Venous thrombosis
     Dosage: YES
     Route: 065
     Dates: start: 20240115

REACTIONS (2)
  - Off label use [Unknown]
  - Influenza [Unknown]
